FAERS Safety Report 5192316-9 (Version None)
Quarter: 2006Q4

REPORT INFORMATION
  Report Type: 
  Country: None (occurrence: None)
  Receive Date: 20061227
  Receipt Date: 20061215
  Transmission Date: 20070319
  Serious: Yes (Other)
  Sender: FDA-Public Use
  Company Number: GB-PFIZER INC-2006154438

PATIENT
  Age: 47 Year
  Sex: Female
  Weight: 93.8 kg

DRUGS (1)
  1. EPIRUBICIN HYDROCHLORIDE [Suspect]
     Indication: BREAST CANCER
     Route: 042
     Dates: start: 20060816, end: 20061018

REACTIONS (3)
  - ERYTHEMA [None]
  - PAIN IN EXTREMITY [None]
  - TENDERNESS [None]
